FAERS Safety Report 21307311 (Version 1)
Quarter: 2022Q3

REPORT INFORMATION
  Report Type: Spontaneous
  Country: US (occurrence: None)
  Receive Date: 20220907
  Receipt Date: 20220907
  Transmission Date: 20221026
  Serious: Yes (Disabling)
  Sender: FDA-Public Use
  Company Number: None

PATIENT
  Age: 54 Year
  Sex: Female
  Weight: 51.75 kg

DRUGS (8)
  1. ROSUVASTATIN [Suspect]
     Active Substance: ROSUVASTATIN
     Indication: Blood cholesterol increased
     Dosage: OTHER QUANTITY : 1 TABLET(S);?FREQUENCY : DAILY;?
     Route: 048
     Dates: start: 20220717, end: 20220730
  2. LEVOTHYROXINE [Concomitant]
     Active Substance: LEVOTHYROXINE
  3. Sodium alendronate [Concomitant]
  4. SUDAFED [Concomitant]
     Active Substance: PSEUDOEPHEDRINE HYDROCHLORIDE
  5. MUCINEX [Concomitant]
     Active Substance: GUAIFENESIN
  6. ADVIL [Concomitant]
     Active Substance: IBUPROFEN
  7. HERBALS\TURMERIC [Concomitant]
     Active Substance: HERBALS\TURMERIC
  8. CHONDROITIN [Concomitant]
     Active Substance: CHONDROITIN

REACTIONS (6)
  - Confusional state [None]
  - Memory impairment [None]
  - Impaired driving ability [None]
  - Therapy interrupted [None]
  - Myalgia [None]
  - Bradyphrenia [None]

NARRATIVE: CASE EVENT DATE: 20220720
